FAERS Safety Report 18258187 (Version 2)
Quarter: 2021Q1

REPORT INFORMATION
  Report Type: Report from Study
  Country: CR (occurrence: CR)
  Receive Date: 20200911
  Receipt Date: 20210324
  Transmission Date: 20210419
  Serious: Yes (Other)
  Sender: FDA-Public Use
  Company Number: NVSC2020CR246821

PATIENT
  Age: 69 Year
  Sex: Female

DRUGS (2)
  1. DIOVAN [Suspect]
     Active Substance: VALSARTAN
     Indication: BLOOD PRESSURE ABNORMAL
     Dosage: 320 MG
     Route: 065
     Dates: start: 20200814
  2. DIOVAN [Suspect]
     Active Substance: VALSARTAN
     Dosage: 320 MG
     Route: 065

REACTIONS (8)
  - Malaise [Unknown]
  - Insomnia [Recovering/Resolving]
  - Pain [Unknown]
  - Hypertension [Unknown]
  - Muscle contracture [Unknown]
  - Thermal burn [Unknown]
  - Nephropathy [Unknown]
  - Blood urea abnormal [Unknown]
